APPROVED DRUG PRODUCT: STREPTOMYCIN SULFATE
Active Ingredient: STREPTOMYCIN SULFATE
Strength: EQ 5GM BASE/VIAL
Dosage Form/Route: INJECTABLE;INJECTION
Application: A060107 | Product #002
Applicant: ELI LILLY AND CO
Approved: Approved Prior to Jan 1, 1982 | RLD: No | RS: No | Type: DISCN